FAERS Safety Report 5409755-0 (Version None)
Quarter: 2007Q3

REPORT INFORMATION
  Report Type: 
  Country: None (occurrence: None)
  Receive Date: 20070809
  Receipt Date: 20070806
  Transmission Date: 20080115
  Serious: Yes (Hospitalization)
  Sender: FDA-Public Use
  Company Number: B0482546A

PATIENT
  Age: 50 Year
  Sex: Male

DRUGS (3)
  1. AMOXICILLIN TRIHYDRATE [Suspect]
     Dosage: 1500MG PER DAY
     Route: 048
     Dates: start: 20070722, end: 20070722
  2. OMEPRAZOLE [Suspect]
     Dosage: 40MG PER DAY
     Route: 048
     Dates: start: 20070722, end: 20070722
  3. CLARITHROMYCIN [Suspect]
     Dosage: 800MG PER DAY
     Route: 048
     Dates: start: 20070722, end: 20070722

REACTIONS (2)
  - DERMATITIS ALLERGIC [None]
  - DRUG ERUPTION [None]
